FAERS Safety Report 16787411 (Version 2)
Quarter: 2019Q4

REPORT INFORMATION
  Report Type: Spontaneous
  Country: GB (occurrence: GB)
  Receive Date: 20190909
  Receipt Date: 20191022
  Transmission Date: 20200122
  Serious: Yes (Death, Hospitalization, Other)
  Sender: FDA-Public Use
  Company Number: GB-ACTELION-A-NJ2019-195289

PATIENT
  Age: 82 Year
  Sex: Female

DRUGS (2)
  1. SILDENAFIL. [Concomitant]
     Active Substance: SILDENAFIL
  2. VENTAVIS [Suspect]
     Active Substance: ILOPROST
     Indication: PULMONARY HYPERTENSION
     Dosage: 5UG, 5ID
     Route: 055
     Dates: start: 20130108

REACTIONS (2)
  - Death [Fatal]
  - Pulmonary thrombosis [Unknown]

NARRATIVE: CASE EVENT DATE: 20191014
